FAERS Safety Report 22518091 (Version 1)
Quarter: 2023Q2

REPORT INFORMATION
  Report Type: Report from Study
  Country: US (occurrence: US)
  Receive Date: 20230605
  Receipt Date: 20230605
  Transmission Date: 20230722
  Serious: Yes (Hospitalization)
  Sender: FDA-Public Use
  Company Number: US-JNJFOC-20230380395

PATIENT
  Age: 73 Year
  Sex: Female
  Weight: 64.123 kg

DRUGS (13)
  1. MACITENTAN [Suspect]
     Active Substance: MACITENTAN
     Indication: Pulmonary arterial hypertension
     Route: 048
     Dates: start: 20230304, end: 20230325
  2. MACITENTAN [Suspect]
     Active Substance: MACITENTAN
     Route: 048
     Dates: start: 20230119, end: 20230321
  3. OXYGEN [Concomitant]
     Active Substance: OXYGEN
  4. PREGABALIN [Concomitant]
     Active Substance: PREGABALIN
     Indication: Pain
  5. PANTOPRAZOLE [Concomitant]
     Active Substance: PANTOPRAZOLE
     Indication: Gastrooesophageal reflux disease
  6. CALCIUM [Concomitant]
     Active Substance: CALCIUM
  7. TERTATOLOL HYDROCHLORIDE [Concomitant]
     Active Substance: TERTATOLOL HYDROCHLORIDE
     Indication: Macular degeneration
  8. ESTRADIOL [Concomitant]
     Active Substance: ESTRADIOL
     Indication: Depression
  9. MOMETASONE [Concomitant]
     Active Substance: MOMETASONE
  10. GALCANEZUMAB [Concomitant]
     Active Substance: GALCANEZUMAB
     Indication: Headache
  11. ASPIRIN\HYDROCODONE BITARTRATE [Concomitant]
     Active Substance: ASPIRIN\HYDROCODONE BITARTRATE
     Indication: Pain
     Dosage: 5/325
  12. DONEPEZIL [Concomitant]
     Active Substance: DONEPEZIL
     Indication: Dementia
  13. POTASSIUM CHLORIDE [Concomitant]
     Active Substance: POTASSIUM CHLORIDE
     Indication: Diuretic therapy

REACTIONS (6)
  - Cardiac failure congestive [Recovered/Resolved]
  - Hospitalisation [Unknown]
  - Asthenia [Unknown]
  - Feeling abnormal [Unknown]
  - Oxygen saturation decreased [Unknown]
  - Fluid retention [Unknown]

NARRATIVE: CASE EVENT DATE: 20230323
